FAERS Safety Report 5707874-2 (Version None)
Quarter: 2008Q2

REPORT INFORMATION
  Report Type: 
  Country: None (occurrence: None)
  Receive Date: 20080417
  Receipt Date: 20080417
  Transmission Date: 20081010
  Serious: No
  Sender: FDA-Public Use
  Company Number: None

PATIENT
  Sex: Female

DRUGS (1)
  1. HEPARIN SODIUM [Suspect]
     Dosage: 7,500 UNITS TWICE DAILY SQ
     Route: 058
     Dates: start: 20080403, end: 20080405

REACTIONS (1)
  - HYPERSENSITIVITY [None]
